FAERS Safety Report 21080906 (Version 1)
Quarter: 2022Q3

REPORT INFORMATION
  Report Type: Other
  Country: US (occurrence: None)
  Receive Date: 20220714
  Receipt Date: 20220714
  Transmission Date: 20221027
  Serious: Yes (Other)
  Sender: FDA-Public Use
  Company Number: US-ROCHE-3134946

PATIENT
  Sex: Female
  Weight: 86.260 kg

DRUGS (1)
  1. OCREVUS [Suspect]
     Active Substance: OCRELIZUMAB
     Indication: Relapsing-remitting multiple sclerosis
     Dosage: 600MG EVERY 6 MONTHS
     Route: 042
     Dates: end: 20211201

REACTIONS (3)
  - Infection [Recovered/Resolved]
  - Cystitis [Recovered/Resolved]
  - Relapsing multiple sclerosis [Recovered/Resolved]
